FAERS Safety Report 20460556 (Version 1)
Quarter: 2022Q1

REPORT INFORMATION
  Report Type: Report from Study
  Country: US (occurrence: US)
  Receive Date: 20220211
  Receipt Date: 20220211
  Transmission Date: 20220423
  Serious: Yes (Hospitalization)
  Sender: FDA-Public Use
  Company Number: US-JAZZ-2021-US-013580

PATIENT
  Age: 15 Year
  Sex: Female
  Weight: 56.8 kg

DRUGS (8)
  1. ASPARAGINASE ERWINIA CHRYSANTHEMI [Suspect]
     Active Substance: ASPARAGINASE ERWINIA CHRYSANTHEMI
     Indication: Acute lymphocytic leukaemia
     Dosage: 36 MILLIGRAM (25MG/M2), 3XWEEKLY PER 2W COURSE
     Route: 042
     Dates: start: 20210419, end: 20210430
  2. ASPARAGINASE ERWINIA CHRYSANTHEMI [Suspect]
     Active Substance: ASPARAGINASE ERWINIA CHRYSANTHEMI
     Dosage: 38 MILLIGRAM (25MG/M2), 3XWEEKLY PER 2W COURSE
     Route: 042
     Dates: end: 20210719
  3. PROVERA [Concomitant]
     Active Substance: MEDROXYPROGESTERONE ACETATE
     Dosage: 10 MILLIGRAM, BID
     Route: 048
     Dates: start: 20210303
  4. CETIRIZINE HYDROCHLORIDE [Concomitant]
     Active Substance: CETIRIZINE HYDROCHLORIDE
     Dosage: 10 MILLIGRAM, PRN DAILY
     Route: 048
     Dates: start: 20210707
  5. ZYPREXA [Concomitant]
     Active Substance: OLANZAPINE
     Dosage: 5 MILLIGRAM, QD
     Route: 048
     Dates: start: 20201209
  6. ZOLOFT [Concomitant]
     Active Substance: SERTRALINE HYDROCHLORIDE
     Dosage: 50 MILLIGRAM, TID
     Route: 048
     Dates: start: 20210609
  7. BACTRIM [Concomitant]
     Active Substance: SULFAMETHOXAZOLE\TRIMETHOPRIM
     Dosage: 120 MILLIGRAM, BID
     Route: 048
     Dates: start: 20210306
  8. TOPAMAX [Concomitant]
     Active Substance: TOPIRAMATE
     Dosage: 50 MILLIGRAM, QNIGHTLY
     Route: 048
     Dates: start: 20210630

REACTIONS (1)
  - Hypotension [Recovered/Resolved]

NARRATIVE: CASE EVENT DATE: 20210721
